FAERS Safety Report 8117202-3 (Version None)
Quarter: 2012Q1

REPORT INFORMATION
  Report Type: 
  Country: None (occurrence: None)
  Receive Date: 20120206
  Receipt Date: 20120125
  Transmission Date: 20120608
  Serious: Yes (Congenital Anomaly)
  Sender: FDA-Public Use
  Company Number: JP-ASTRAZENECA-2012SE06781

PATIENT
  Age: 0 Day
  Sex: Male
  Weight: 3.6 kg

DRUGS (3)
  1. SEROQUEL [Suspect]
     Indication: FOETAL EXPOSURE DURING PREGNANCY
     Route: 064
     Dates: start: 20100101, end: 20110501
  2. SERTRALINE HYDROCHLORIDE [Concomitant]
     Indication: FOETAL EXPOSURE DURING PREGNANCY
     Route: 064
     Dates: start: 20100101, end: 20110501
  3. RITODRINE HYDROCHLORIDE [Concomitant]
     Route: 064
     Dates: start: 20110307, end: 20110318

REACTIONS (2)
  - RESPIRATORY FAILURE [None]
  - FOETAL DISTRESS SYNDROME [None]
